FAERS Safety Report 5052840-6 (Version None)
Quarter: 2006Q3

REPORT INFORMATION
  Report Type: 
  Country: None (occurrence: None)
  Receive Date: 20060706
  Receipt Date: 20060620
  Transmission Date: 20061208
  Serious: Yes (Other)
  Sender: FDA-Public Use
  Company Number: THYM-10981

PATIENT
  Age: 23 Year
  Sex: Male

DRUGS (11)
  1. THYMOGLOBULIN [Suspect]
     Indication: RENAL TRANSPLANT
     Dates: start: 20060603, end: 20060610
  2. PROGRAF [Concomitant]
  3. CELLCEPT [Concomitant]
  4. PREDNISONE [Concomitant]
  5. BACTRIM [Concomitant]
  6. VALCYTE [Concomitant]
  7. PROTONIX [Concomitant]
  8. DEMADEX [Concomitant]
  9. SODIUM CARBONATE [Concomitant]
  10. REGLAN [Concomitant]
  11. BUMEX [Concomitant]

REACTIONS (7)
  - ANAEMIA [None]
  - ARTHRALGIA [None]
  - HYPERTENSION [None]
  - JOINT SWELLING [None]
  - LEUKOCYTOSIS [None]
  - LUNG CONSOLIDATION [None]
  - PYREXIA [None]
